FAERS Safety Report 4393487-4 (Version None)
Quarter: 2004Q3

REPORT INFORMATION
  Report Type: 
  Country: None (occurrence: None)
  Receive Date: 20040707
  Receipt Date: 20040707
  Transmission Date: 20050211
  Serious: Yes (Other)
  Sender: FDA-Public Use
  Company Number: None

PATIENT
  Age: 39 Year
  Sex: Female
  Weight: 66.6788 kg

DRUGS (3)
  1. OXYCONTIN [Suspect]
     Indication: FIBROMYALGIA
     Dosage: 80 MG -TWO PO Q12 H
     Route: 048
  2. OXYCONTIN [Suspect]
     Indication: PAIN
     Dosage: 80 MG -TWO PO Q12 H
     Route: 048
  3. MS CONTIN [Concomitant]

REACTIONS (1)
  - DRUG INEFFECTIVE [None]
